FAERS Safety Report 24016932 (Version 1)
Quarter: 2024Q2

REPORT INFORMATION
  Report Type: Spontaneous
  Country: US (occurrence: US)
  Receive Date: 20240626
  Receipt Date: 20240626
  Transmission Date: 20240716
  Serious: No
  Sender: FDA-Public Use
  Company Number: US-ELI_LILLY_AND_COMPANY-US202406016454

PATIENT
  Sex: Female

DRUGS (2)
  1. TALTZ [Suspect]
     Active Substance: IXEKIZUMAB
     Indication: Product used for unknown indication
     Dosage: 160 MG, UNKNOWN, LOADING DOSE
     Route: 058
     Dates: start: 20240611
  2. ACCUTANE [Concomitant]
     Active Substance: ISOTRETINOIN
     Indication: Product used for unknown indication
     Dosage: UNK
     Dates: start: 20240614

REACTIONS (4)
  - Rash [Unknown]
  - Headache [Unknown]
  - Chest discomfort [Unknown]
  - Injection site rash [Unknown]

NARRATIVE: CASE EVENT DATE: 20240621
